FAERS Safety Report 24424556 (Version 1)
Quarter: 2024Q4

REPORT INFORMATION
  Report Type: Spontaneous
  Country: PL (occurrence: PL)
  Receive Date: 20241010
  Receipt Date: 20241010
  Transmission Date: 20250114
  Serious: Yes (Other)
  Sender: TEVA
  Company Number: None

PATIENT
  Age: 48 Year
  Sex: Female
  Weight: 83 kg

DRUGS (5)
  1. METHOTREXATE [Suspect]
     Active Substance: METHOTREXATE
     Indication: Rheumatoid arthritis
     Dosage: ORALLY FOR 2 MONTHS, THEN SUBCUTANEOUS FOR 4 MONTHS, METHOTREXAT
     Route: 065
     Dates: start: 2015, end: 2015
  2. SULFASALAZINE [Concomitant]
     Active Substance: SULFASALAZINE
     Indication: Rheumatoid arthritis
     Route: 048
     Dates: start: 201904, end: 201905
  3. METHYLPREDNISOLONE [Concomitant]
     Active Substance: METHYLPREDNISOLONE
     Indication: Rheumatoid arthritis
     Dosage: 4-8 MG PER WEEK
     Route: 048
     Dates: start: 2015
  4. PLAQUENIL [Suspect]
     Active Substance: HYDROXYCHLOROQUINE SULFATE
     Indication: Rheumatoid arthritis
     Route: 048
     Dates: start: 20190803, end: 20190830
  5. LEFLUNOMIDE [Suspect]
     Active Substance: LEFLUNOMIDE
     Indication: Rheumatoid arthritis
     Dosage: LEFLUNOMID
     Route: 048
     Dates: start: 2016, end: 2016

REACTIONS (2)
  - Hepatotoxicity [Recovered/Resolved]
  - Urticaria [Recovered/Resolved]
